FAERS Safety Report 7425654-7 (Version None)
Quarter: 2011Q2

REPORT INFORMATION
  Report Type: 
  Country: None (occurrence: None)
  Receive Date: 20110420
  Receipt Date: 20110411
  Transmission Date: 20111010
  Serious: Yes (Disabling)
  Sender: FDA-Public Use
  Company Number: BR-ASTRAZENECA-2011SE20937

PATIENT
  Age: 67 Year
  Sex: Male
  Weight: 150 kg

DRUGS (1)
  1. TENORETIC 100 [Suspect]
     Route: 048
     Dates: start: 19940101

REACTIONS (1)
  - CEREBRAL ISCHAEMIA [None]
